FAERS Safety Report 7531116-9 (Version None)
Quarter: 2011Q2

REPORT INFORMATION
  Report Type: 
  Country: None (occurrence: None)
  Receive Date: 20110608
  Receipt Date: 20110527
  Transmission Date: 20111010
  Serious: No
  Sender: FDA-Public Use
  Company Number: CA-JNJFOC-20110506008

PATIENT

DRUGS (2)
  1. STELARA [Suspect]
     Indication: PSORIASIS
     Route: 058
     Dates: start: 20110101
  2. STELARA [Suspect]
     Route: 058
     Dates: start: 20110214

REACTIONS (1)
  - ERYSIPELAS [None]
